FAERS Safety Report 20112750 (Version 1)
Quarter: 2021Q4

REPORT INFORMATION
  Report Type: Spontaneous
  Country: US (occurrence: US)
  Receive Date: 20211125
  Receipt Date: 20211125
  Transmission Date: 20220303
  Serious: Yes (Hospitalization, Other)
  Sender: FDA-Public Use
  Company Number: US-ALVOGEN-2021-ALVOGEN-117825

PATIENT
  Age: 29 Year
  Sex: Female

DRUGS (10)
  1. LIDOCAINE [Suspect]
     Active Substance: LIDOCAINE
     Indication: Cancer pain
     Dosage: FOLLOWED BY A CONTINUOUS INFUSION OF 1 MG/KG/HOUR, BASED ON IDEAL BODY WEIGHT.
     Route: 042
  2. DEXAMETHASONE [Suspect]
     Active Substance: DEXAMETHASONE
     Indication: Spinal cord compression
  3. FENTANYL [Concomitant]
     Active Substance: FENTANYL
     Indication: Cancer pain
     Dosage: PCA UP TO A 150 MCG IV?BOLUS Q10 MINUTES PRN WITH
  4. METHADONE [Concomitant]
     Active Substance: METHADONE HYDROCHLORIDE
     Indication: Product used for unknown indication
     Dosage: 20/20/30 MG PO TID
     Route: 048
  5. ACETAMINOPHEN [Concomitant]
     Active Substance: ACETAMINOPHEN
     Indication: Product used for unknown indication
     Route: 048
  6. DULOXETINE [Concomitant]
     Active Substance: DULOXETINE
     Indication: Product used for unknown indication
  7. METHOCARBAMOL [Concomitant]
     Active Substance: METHOCARBAMOL
     Indication: Product used for unknown indication
     Dosage: QID
     Route: 048
  8. KETAMINE [Concomitant]
     Active Substance: KETAMINE
     Indication: Cancer pain
     Dosage: 0.3 MG/KG/HOUR
  9. BUPIVACAINE [Concomitant]
     Active Substance: BUPIVACAINE
     Indication: Product used for unknown indication
  10. HYDROMORPHONE [Concomitant]
     Active Substance: HYDROMORPHONE
     Indication: Product used for unknown indication
     Dosage: INTRATHECAL

REACTIONS (1)
  - Hoigne^s syndrome [Recovering/Resolving]
